FAERS Safety Report 9885273 (Version 1)
Quarter: 2014Q1

REPORT INFORMATION
  Report Type: Spontaneous
  Country: US (occurrence: US)
  Receive Date: 20140210
  Receipt Date: 20140210
  Transmission Date: 20141002
  Serious: No
  Sender: FDA-Public Use
  Company Number: US-PFIZER INC-2014033561

PATIENT
  Age: 69 Year
  Sex: Male

DRUGS (5)
  1. INLYTA [Suspect]
     Indication: RENAL CANCER
     Dosage: 5 MG, UNK
     Dates: start: 20140203
  2. AMLODIPINE BESY-BENAZEPRIL HCL [Concomitant]
     Dosage: UNK
  3. CARVEDILOL [Concomitant]
     Dosage: UNK
  4. LEVOTHYROXINE SODIUM [Concomitant]
     Dosage: UNK
  5. SENNA - S [Concomitant]
     Dosage: UNK

REACTIONS (3)
  - Aphonia [Unknown]
  - Decreased appetite [Unknown]
  - Dry mouth [Unknown]
